FAERS Safety Report 11180606 (Version 1)
Quarter: 2015Q2

REPORT INFORMATION
  Report Type: Spontaneous
  Country: US (occurrence: US)
  Receive Date: 20150611
  Receipt Date: 20150611
  Transmission Date: 20150821
  Serious: No
  Sender: FDA-Public Use
  Company Number: US-PFIZER INC-2015192902

PATIENT
  Sex: Female

DRUGS (5)
  1. TYLENOL ARTHRITIS PAIN [Suspect]
     Active Substance: ACETAMINOPHEN
     Indication: ARTHRALGIA
     Dosage: 1300 MG, DAILY
     Route: 048
  2. NAPROXEN. [Suspect]
     Active Substance: NAPROXEN
     Indication: ARTHRALGIA
     Dosage: 200 MG, 2X/DAY
  3. TRAMADOL HCL [Suspect]
     Active Substance: TRAMADOL HYDROCHLORIDE
     Indication: ARTHRALGIA
     Dosage: UNK
  4. IBUPROFEN. [Suspect]
     Active Substance: IBUPROFEN
     Indication: ARTHRALGIA
     Dosage: 800 MG, DAILY
     Route: 048
  5. NAPROXEN. [Suspect]
     Active Substance: NAPROXEN
     Dosage: 600 MG, TWO 200MG IN THE MORNING AND ONE 200MG AT NIGHT

REACTIONS (5)
  - Drug effect incomplete [Unknown]
  - Depressed mood [Unknown]
  - Asthenia [Unknown]
  - Confusional state [Unknown]
  - Irritability [Unknown]
